FAERS Safety Report 5628372-0 (Version None)
Quarter: 2008Q1

REPORT INFORMATION
  Report Type: 
  Country: None (occurrence: None)
  Receive Date: 20080215
  Receipt Date: 20080205
  Transmission Date: 20080703
  Serious: Yes (Other)
  Sender: FDA-Public Use
  Company Number: US-PFIZER INC-2008011549

PATIENT
  Sex: Male

DRUGS (2)
  1. LIPITOR [Suspect]
     Dates: start: 19990901, end: 20071201
  2. SIMVASTATIN [Suspect]

REACTIONS (1)
  - MYOCARDIAL INFARCTION [None]
